FAERS Safety Report 13906146 (Version 11)
Quarter: 2018Q2

REPORT INFORMATION
  Report Type: Report from Study
  Country: DE (occurrence: DE)
  Receive Date: 20170825
  Receipt Date: 20180424
  Transmission Date: 20180711
  Serious: Yes (Hospitalization)
  Sender: FDA-Public Use
  Company Number: DE-SA-2017SA152949

PATIENT
  Age: 29 Year
  Sex: Female
  Weight: 61.8 kg

DRUGS (6)
  1. TRIMIPRAMINE [Concomitant]
     Active Substance: TRIMIPRAMINE
     Indication: DEPRESSION
     Route: 048
     Dates: start: 20160411
  2. DULOXETINE. [Concomitant]
     Active Substance: DULOXETINE
     Indication: URINARY INCONTINENCE
     Route: 048
     Dates: start: 20160411
  3. DULOXETINE. [Concomitant]
     Active Substance: DULOXETINE
     Indication: DEPRESSION
     Route: 048
     Dates: start: 20160411
  4. ELTROMBOPAG [Concomitant]
     Active Substance: ELTROMBOPAG
     Route: 065
     Dates: end: 201712
  5. LEMTRADA [Suspect]
     Active Substance: ALEMTUZUMAB
     Indication: MULTIPLE SCLEROSIS
     Route: 041
     Dates: start: 20161017, end: 20161019
  6. LEMTRADA [Suspect]
     Active Substance: ALEMTUZUMAB
     Indication: MULTIPLE SCLEROSIS
     Route: 041
     Dates: start: 20151012, end: 20151016

REACTIONS (7)
  - Skin mass [Recovered/Resolved]
  - Leukopenia [Recovering/Resolving]
  - Arthralgia [Recovering/Resolving]
  - Nasopharyngitis [Recovered/Resolved]
  - Immune thrombocytopenic purpura [Recovering/Resolving]
  - Hodgkin^s disease mixed cellularity stage unspecified [Not Recovered/Not Resolved]
  - Autoimmune haemolytic anaemia [Recovering/Resolving]

NARRATIVE: CASE EVENT DATE: 20170803
